FAERS Safety Report 11526233 (Version 4)
Quarter: 2016Q1

REPORT INFORMATION
  Report Type: Report from Study
  Country: US (occurrence: US)
  Receive Date: 20150919
  Receipt Date: 20160119
  Transmission Date: 20160525
  Serious: No
  Sender: FDA-Public Use
  Company Number: PHEH2015US018022

PATIENT
  Age: 3 Year
  Sex: Female

DRUGS (3)
  1. ILARIS [Suspect]
     Active Substance: CANAKINUMAB
     Dosage: 72 MG, EVERY 4 WEEKS
     Route: 058
     Dates: start: 20150915, end: 20150915
  2. ILARIS [Suspect]
     Active Substance: CANAKINUMAB
     Dosage: 72 MG, EVERY 4 WEEKS
     Route: 058
     Dates: start: 20150806, end: 20150806
  3. ILARIS [Suspect]
     Active Substance: CANAKINUMAB
     Dosage: 72 MG, EVERY 4 WEEKS
     Route: 058

REACTIONS (4)
  - Abdominal pain upper [Unknown]
  - Inappropriate schedule of drug administration [Unknown]
  - Vomiting [Unknown]
  - Gastroenteritis viral [Unknown]

NARRATIVE: CASE EVENT DATE: 20160108
